FAERS Safety Report 10174769 (Version 2)
Quarter: 2014Q2

REPORT INFORMATION
  Report Type: Spontaneous
  Country: JP (occurrence: JP)
  Receive Date: 20140515
  Receipt Date: 20140520
  Transmission Date: 20141212
  Serious: Yes (Hospitalization)
  Sender: FDA-Public Use
  Company Number: JP-PFIZER INC-2014130963

PATIENT
  Age: 59 Year
  Sex: Male

DRUGS (2)
  1. JZOLOFT [Suspect]
     Dosage: 50 MG/DAY
     Route: 048
  2. BFLUID [Concomitant]
     Dosage: UNK
     Route: 041

REACTIONS (1)
  - Appendicitis [Unknown]
